FAERS Safety Report 13457714 (Version 4)
Quarter: 2018Q2

REPORT INFORMATION
  Report Type: Spontaneous
  Country: US (occurrence: US)
  Receive Date: 20170419
  Receipt Date: 20180605
  Transmission Date: 20180711
  Serious: No
  Sender: FDA-Public Use
  Company Number: US-009507513-1704USA003792

PATIENT
  Sex: Female

DRUGS (2)
  1. CLARINEX [Suspect]
     Active Substance: DESLORATADINE
     Route: 048
  2. OLMESARTAN MEDOXOMIL. [Suspect]
     Active Substance: OLMESARTAN MEDOXOMIL
     Dosage: UNK
     Route: 048

REACTIONS (7)
  - Dysgeusia [Unknown]
  - Back pain [Recovered/Resolved]
  - Pruritus [Recovered/Resolved]
  - Lip dry [Unknown]
  - Paraesthesia [Unknown]
  - Bladder disorder [Unknown]
  - Skin burning sensation [Recovered/Resolved]
